FAERS Safety Report 23052793 (Version 1)
Quarter: 2023Q4

REPORT INFORMATION
  Report Type: Spontaneous
  Country: ES (occurrence: ES)
  Receive Date: 20231011
  Receipt Date: 20231011
  Transmission Date: 20240110
  Serious: Yes (Other)
  Sender: FDA-Public Use
  Company Number: ES-GLAXOSMITHKLINE-ES2023EME012288

PATIENT
  Age: 77 Year
  Sex: Male

DRUGS (2)
  1. BORTEZOMIB [Suspect]
     Active Substance: BORTEZOMIB
     Indication: Product used for unknown indication
     Dosage: UNK
     Route: 065
  2. BELANTAMAB MAFODOTIN [Suspect]
     Active Substance: BELANTAMAB MAFODOTIN
     Indication: Plasma cell myeloma
     Dosage: 100 MILLIGRAM
     Route: 065
     Dates: start: 20230111

REACTIONS (13)
  - Renal injury [Not Recovered/Not Resolved]
  - Cardiac amyloidosis [Not Recovered/Not Resolved]
  - Renal amyloidosis [Not Recovered/Not Resolved]
  - Corneal epithelial microcysts [Recovering/Resolving]
  - Oedema peripheral [Recovering/Resolving]
  - Corneal thinning [Not Recovered/Not Resolved]
  - Vision blurred [Recovering/Resolving]
  - Fatigue [Recovering/Resolving]
  - Asthenia [Recovering/Resolving]
  - Discomfort [Recovering/Resolving]
  - Cough [Recovering/Resolving]
  - Cardiac hypertrophy [Not Recovered/Not Resolved]
  - Drug effect less than expected [Unknown]

NARRATIVE: CASE EVENT DATE: 20230101
